FAERS Safety Report 25483394 (Version 1)
Quarter: 2025Q2

REPORT INFORMATION
  Report Type: Spontaneous
  Country: US (occurrence: None)
  Receive Date: 20250625
  Receipt Date: 20250625
  Transmission Date: 20250717
  Serious: No
  Sender: FDA-CTU
  Company Number: None

PATIENT
  Age: 42 Year
  Sex: Male

DRUGS (2)
  1. SCEMBLIX [Suspect]
     Active Substance: ASCIMINIB HYDROCHLORIDE
     Indication: Myeloid leukaemia
     Dosage: FREQUENCY : DAILY;?
     Route: 048
     Dates: start: 20250604
  2. BOSULIF [Concomitant]
     Active Substance: BOSUTINIB MONOHYDRATE

REACTIONS (4)
  - Ear swelling [None]
  - Pharyngeal swelling [None]
  - Anaemia [None]
  - Musculoskeletal stiffness [None]

NARRATIVE: CASE EVENT DATE: 20250624
